FAERS Safety Report 5419570-X (Version None)
Quarter: 2007Q3

REPORT INFORMATION
  Report Type: 
  Country: None (occurrence: None)
  Receive Date: 20070815
  Receipt Date: 20070815
  Transmission Date: 20080115
  Serious: Yes (Life-Threatening)
  Sender: FDA-Public Use
  Company Number: None

PATIENT
  Age: 42 Year
  Sex: Male
  Weight: 87.0906 kg

DRUGS (1)
  1. ACTOPLUS MET [Suspect]
     Indication: BLOOD GLUCOSE INCREASED
     Dosage: 1 TABLET TWICE DAILY
     Dates: start: 20061218, end: 20061220

REACTIONS (4)
  - ABDOMINAL DISTENSION [None]
  - ASTHENIA [None]
  - DYSPNOEA [None]
  - FLUID RETENTION [None]
